FAERS Safety Report 6016189-7 (Version None)
Quarter: 2008Q4

REPORT INFORMATION
  Report Type: 
  Country: None (occurrence: None)
  Receive Date: 20081222
  Receipt Date: 20081216
  Transmission Date: 20090506
  Serious: Yes (Other)
  Sender: FDA-Public Use
  Company Number: US-WYE-H06800108

PATIENT
  Sex: Male
  Weight: 71 kg

DRUGS (2)
  1. XYNTHA [Suspect]
     Indication: PROPHYLAXIS
     Dosage: UNKNOWN
     Route: 042
  2. XYNTHA [Suspect]
     Indication: FACTOR VIII DEFICIENCY

REACTIONS (3)
  - ABDOMINAL PAIN UPPER [None]
  - HYPERSENSITIVITY [None]
  - TYPE IV HYPERSENSITIVITY REACTION [None]
